FAERS Safety Report 14845566 (Version 2)
Quarter: 2018Q2

REPORT INFORMATION
  Report Type: Spontaneous
  Country: US (occurrence: US)
  Receive Date: 20180504
  Receipt Date: 20180509
  Transmission Date: 20180711
  Serious: No
  Sender: FDA-Public Use
  Company Number: US-PFIZER INC-2018178730

PATIENT
  Age: 72 Year
  Sex: Male
  Weight: 90.7 kg

DRUGS (1)
  1. TRIFLURIDINE. [Suspect]
     Active Substance: TRIFLURIDINE
     Indication: OPHTHALMIC HERPES SIMPLEX
     Dosage: 9 GTT, 1X/DAY(9 DROPS IN LEFT EYE PER DAY FOR 2 WEEKS)
     Route: 047

REACTIONS (4)
  - Corneal disorder [Unknown]
  - Drug ineffective [Unknown]
  - Eye infection viral [Unknown]
  - Condition aggravated [Unknown]
